FAERS Safety Report 10249166 (Version 1)
Quarter: 2014Q2

REPORT INFORMATION
  Report Type: Spontaneous
  Country: US (occurrence: US)
  Receive Date: 20140620
  Receipt Date: 20140620
  Transmission Date: 20141212
  Serious: Yes (Hospitalization)
  Sender: FDA-Public Use
  Company Number: US-SA-2014SA081747

PATIENT
  Age: 27 Year
  Sex: Female
  Weight: 52.16 kg

DRUGS (11)
  1. LUMIZYME [Suspect]
     Indication: GLYCOGEN STORAGE DISEASE TYPE II
     Route: 042
     Dates: start: 20120907
  2. DIPHENHYDRAMINE [Concomitant]
  3. HEPARIN [Concomitant]
  4. NORMAL SALINE [Concomitant]
  5. WATER FOR INJECTION [Concomitant]
  6. SODIUM CHLORIDE [Concomitant]
  7. EPIPEN [Concomitant]
  8. OXCARBAZEPINE [Concomitant]
  9. KEPPRA [Concomitant]
  10. LAMOTRIGINE [Concomitant]
  11. ACETAMINOPHEN [Concomitant]

REACTIONS (1)
  - Convulsion [Unknown]
